FAERS Safety Report 6393059-6 (Version None)
Quarter: 2009Q4

REPORT INFORMATION
  Report Type: 
  Country: None (occurrence: None)
  Receive Date: 20091008
  Receipt Date: 20091005
  Transmission Date: 20100525
  Serious: Yes (Hospitalization)
  Sender: FDA-Public Use
  Company Number: AU-WYE-G04093509

PATIENT
  Sex: Male

DRUGS (17)
  1. EFFEXOR XR [Suspect]
     Indication: DEPRESSION
     Route: 048
     Dates: end: 20090711
  2. ATENOLOL [Concomitant]
  3. CLOTRIMAZOLE [Concomitant]
     Dosage: THIN LAYER TWICE A DAY PRN
     Route: 061
  4. COLOXYL WITH SENNA [Concomitant]
     Dosage: 50MG/8MG TABLET 1-2 DAILY PRN
  5. ATROPINE SULFATE/DIPHENOXYLATE [Concomitant]
     Dosage: 2.5MG;0.025MG TABLET 1 THREE TIMES A DAY PRN
  6. DOMPERIDONE [Concomitant]
  7. FUROSEMIDE [Concomitant]
     Dosage: 40MG TABLET 1 DAILY
  8. GLUCAGEN [Concomitant]
     Dosage: 1MG PRN
  9. METFORMIN [Concomitant]
  10. MICROLAX [Concomitant]
     Dosage: 1 ENEMA PRN
  11. MIRTAZAPINE [Concomitant]
     Dosage: 1/2 X 15MG SOLUBLE TABLET BEFORE BED
  12. NULYTELY [Concomitant]
     Dosage: 1/2 -3 SACHETS DAILY PRN
  13. NORFLOXACIN [Concomitant]
  14. NOVOMIX [Concomitant]
     Dosage: 30 FLEXPEN 3ML AS DIRECTED BEFORE BREAKFAST AND EVENING MEAL
  15. OXAZEPAM [Concomitant]
     Dosage: 15MG TABLET 1 BEFORE BED PRN
  16. ACETAMINOPHEN [Concomitant]
     Dosage: 240MG/5ML ELIXIR 20ML EVERY 4 HOURS PRN
  17. ACTRAPID HUMAN [Concomitant]
     Dosage: 4 IU AS DIRECTED WHEN REQUIRED FOR PERSISTENT BSL}20

REACTIONS (4)
  - BLOOD ALBUMIN DECREASED [None]
  - BLOOD CHLORIDE DECREASED [None]
  - HYPONATRAEMIA [None]
  - PNEUMONIA ASPIRATION [None]
